FAERS Safety Report 5104615-7 (Version None)
Quarter: 2006Q3

REPORT INFORMATION
  Report Type: 
  Country: None (occurrence: None)
  Receive Date: 20060914
  Receipt Date: 20060705
  Transmission Date: 20061208
  Serious: No
  Sender: FDA-Public Use
  Company Number: US-BRISTOL-MYERS SQUIBB COMPANY-13433370

PATIENT
  Age: 74 Year
  Sex: Female
  Weight: 65 kg

DRUGS (8)
  1. BUSPAR [Suspect]
     Indication: ANXIETY
     Route: 048
     Dates: start: 19980101
  2. ATENOLOL [Concomitant]
  3. NEURONTIN [Concomitant]
  4. PROVERA [Concomitant]
  5. PREMARIN [Concomitant]
  6. TRANXENE [Concomitant]
  7. LIBRAX [Concomitant]
  8. FLEXERIL [Concomitant]

REACTIONS (2)
  - INSOMNIA [None]
  - NERVOUSNESS [None]
